FAERS Safety Report 5529384-8 (Version None)
Quarter: 2007Q4

REPORT INFORMATION
  Report Type: 
  Country: None (occurrence: None)
  Receive Date: 20071129
  Receipt Date: 20071126
  Transmission Date: 20080405
  Serious: Yes (Hospitalization)
  Sender: FDA-Public Use
  Company Number: B0496642A

PATIENT
  Age: 69 Year
  Sex: Female

DRUGS (9)
  1. VALTREX [Suspect]
     Indication: HERPES ZOSTER
     Dosage: 1000MG PER DAY
     Route: 048
     Dates: start: 20071117, end: 20071120
  2. ASPIRIN [Concomitant]
     Route: 048
  3. NORVASC [Concomitant]
     Route: 048
  4. DIOVAN [Concomitant]
     Route: 048
  5. CALTAN [Concomitant]
     Route: 048
  6. FUROSEMIDE [Concomitant]
     Route: 048
  7. GLUCOBAY [Concomitant]
     Route: 048
  8. MERISLON [Concomitant]
     Route: 048
  9. ADETPHOS [Concomitant]
     Route: 048

REACTIONS (3)
  - ASTHENIA [None]
  - DEPRESSED LEVEL OF CONSCIOUSNESS [None]
  - DYSKINESIA [None]
